FAERS Safety Report 25245849 (Version 2)
Quarter: 2025Q2

REPORT INFORMATION
  Report Type: Report from Study
  Country: IT (occurrence: IT)
  Receive Date: 20250428
  Receipt Date: 20250618
  Transmission Date: 20250716
  Serious: Yes (Other)
  Sender: BRISTOL-MYERS SQUIBB COMPANY
  Company Number: IT-BRISTOL-MYERS SQUIBB COMPANY-2025-042691

PATIENT
  Age: 79 Year
  Sex: Male
  Weight: 89 kg

DRUGS (6)
  1. REPOTRECTINIB [Suspect]
     Active Substance: REPOTRECTINIB
     Indication: Non-small cell lung cancer metastatic
     Dosage: FREQUENCY: ONCE?40MG
     Route: 048
     Dates: start: 20250303, end: 20250318
  2. REPOTRECTINIB [Suspect]
     Active Substance: REPOTRECTINIB
     Dosage: 40 MG 3 CP
     Route: 048
     Dates: start: 20250324
  3. REPOTRECTINIB [Suspect]
     Active Substance: REPOTRECTINIB
     Dosage: 40 MG 2 CP
     Route: 048
     Dates: start: 20250408
  4. REPOTRECTINIB [Suspect]
     Active Substance: REPOTRECTINIB
     Dosage: 40 MG 2 CP
     Route: 048
     Dates: start: 20250502, end: 20250602
  5. DEXAMETHASONE SODIUM PHOSPHATE [Concomitant]
     Active Substance: DEXAMETHASONE SODIUM PHOSPHATE
     Indication: Product used for unknown indication
     Route: 048
     Dates: start: 20241227
  6. PANTOPRAZOLE [Concomitant]
     Active Substance: PANTOPRAZOLE
     Indication: Product used for unknown indication
     Route: 048
     Dates: start: 20240304

REACTIONS (5)
  - Aspartate aminotransferase increased [Recovered/Resolved]
  - Alanine aminotransferase increased [Recovered/Resolved]
  - Neurotoxicity [Not Recovered/Not Resolved]
  - Transaminases increased [Unknown]
  - Condition aggravated [Not Recovered/Not Resolved]

NARRATIVE: CASE EVENT DATE: 20250313
